FAERS Safety Report 14923368 (Version 1)
Quarter: 2018Q2

REPORT INFORMATION
  Report Type: Spontaneous
  Country: ES (occurrence: ES)
  Receive Date: 20180522
  Receipt Date: 20180522
  Transmission Date: 20180711
  Serious: Yes (Hospitalization)
  Sender: FDA-Public Use
  Company Number: ES-AMGEN-ESPSP2018067264

PATIENT
  Age: 53 Year
  Sex: Female
  Weight: 68.6 kg

DRUGS (19)
  1. PARACETAMOL [Concomitant]
     Active Substance: ACETAMINOPHEN
     Dosage: 1 MG, UNK
     Route: 048
     Dates: start: 20130604
  2. ODENIL [Concomitant]
     Dosage: 1 UNK, UNK
     Route: 061
     Dates: start: 20140128
  3. ARANESP [Concomitant]
     Active Substance: DARBEPOETIN ALFA
     Dosage: 150 MUG, UNK
     Route: 058
     Dates: start: 20150109
  4. METAMIZOL [Concomitant]
     Active Substance: METAMIZOLE SODIUM
     Dosage: 575 MG, UNK
     Route: 048
     Dates: start: 20171127
  5. BISOPROLOL [Concomitant]
     Active Substance: BISOPROLOL
     Dosage: 2.5 MG, AND 5 MG
     Route: 048
     Dates: start: 20171218, end: 20180318
  6. PANTOPRAZOL [Concomitant]
     Active Substance: PANTOPRAZOLE SODIUM
     Dosage: 20 MG, AND 40 MG
     Route: 048
     Dates: start: 20130327, end: 20180311
  7. ACETILCISTEINA [Concomitant]
     Active Substance: ACETYLCYSTEINE
     Dosage: 600 MG, UNK
     Route: 048
     Dates: start: 20180102
  8. CARFILZOMIB [Suspect]
     Active Substance: CARFILZOMIB
     Indication: PLASMA CELL MYELOMA
     Dosage: UNK
     Route: 065
     Dates: start: 20171108
  9. DENOSUMAB [Concomitant]
     Active Substance: DENOSUMAB
     Indication: PLASMA CELL MYELOMA
     Dosage: 1.7 ML, UNK
     Route: 065
     Dates: start: 20170201, end: 20180228
  10. LORMETAZEPAM [Concomitant]
     Active Substance: LORMETAZEPAM
     Dosage: 2 MG, UNK
     Route: 048
     Dates: start: 20130603
  11. CLEXANE [Concomitant]
     Active Substance: ENOXAPARIN SODIUM
     Dosage: 40 MG, UNK
     Route: 058
     Dates: start: 20180109, end: 20180110
  12. ALPRAZOLAM. [Concomitant]
     Active Substance: ALPRAZOLAM
     Dosage: 0.25 MG, UNK
     Route: 048
     Dates: start: 20130628, end: 20180110
  13. OSTINE [Concomitant]
     Dosage: 1 (1250MG + 400 UI) UNK
     Route: 048
     Dates: start: 20140305
  14. DEXAMETHASONE. [Concomitant]
     Active Substance: DEXAMETHASONE
     Dosage: UNK
     Dates: start: 20171108
  15. SEPTRIN [Concomitant]
     Active Substance: SULFAMETHOXAZOLE\TRIMETHOPRIM
     Dosage: 160 MG, UNK
     Route: 048
     Dates: start: 20180109, end: 20180110
  16. LORAZEPAM. [Concomitant]
     Active Substance: LORAZEPAM
     Dosage: 1 MG, UNK
     Route: 048
     Dates: start: 20180109, end: 20180110
  17. CEFUROXIMA [Concomitant]
     Dosage: 250 - 500 MG, UNK
     Route: 048
     Dates: start: 20171228
  18. MEROPENEM. [Concomitant]
     Active Substance: MEROPENEM
     Dosage: 1000 G, UNK
     Route: 048
     Dates: start: 20180311, end: 20180322
  19. LEXATIN [Concomitant]
     Dosage: 1.5 MG, UNK
     Route: 048
     Dates: start: 20121018

REACTIONS (1)
  - Supraventricular tachycardia [Recovered/Resolved]

NARRATIVE: CASE EVENT DATE: 20180316
